FAERS Safety Report 23950068 (Version 2)
Quarter: 2024Q2

REPORT INFORMATION
  Report Type: Spontaneous
  Country: US (occurrence: US)
  Receive Date: 20240607
  Receipt Date: 20240611
  Transmission Date: 20240716
  Serious: Yes (Hospitalization, Other)
  Sender: FDA-Public Use
  Company Number: US-BRISTOL-MYERS SQUIBB COMPANY-2024-091698

PATIENT
  Sex: Female

DRUGS (3)
  1. ELIQUIS [Suspect]
     Active Substance: APIXABAN
     Indication: Atrial fibrillation
     Dates: start: 2024, end: 2024
  2. ELIQUIS [Suspect]
     Active Substance: APIXABAN
     Dates: start: 2024
  3. CYTOMEL [Concomitant]
     Active Substance: LIOTHYRONINE SODIUM
     Indication: Thyroid disorder

REACTIONS (9)
  - Headache [Unknown]
  - Gait disturbance [Unknown]
  - Blood urine present [Not Recovered/Not Resolved]
  - Haematochezia [Not Recovered/Not Resolved]
  - Joint swelling [Unknown]
  - Dyspnoea [Unknown]
  - Visual impairment [Unknown]
  - Dysphagia [Unknown]
  - Hypersomnia [Unknown]

NARRATIVE: CASE EVENT DATE: 20240101
